FAERS Safety Report 4584149-9 (Version None)
Quarter: 2005Q1

REPORT INFORMATION
  Report Type: 
  Country: None (occurrence: None)
  Receive Date: 20050216
  Receipt Date: 20041116
  Transmission Date: 20050727
  Serious: Yes (Death, Other)
  Sender: FDA-Public Use
  Company Number: PHEH2004US12446

PATIENT
  Age: 47 Year
  Sex: Female

DRUGS (4)
  1. AREDIA [Suspect]
  2. ZOLADEX [Concomitant]
  3. FEMARA [Concomitant]
  4. ZOMETA [Suspect]

REACTIONS (3)
  - BONE DISORDER [None]
  - CEREBROVASCULAR ACCIDENT [None]
  - TOOTH EXTRACTION [None]
